FAERS Safety Report 11279616 (Version 9)
Quarter: 2018Q3

REPORT INFORMATION
  Report Type: Report from Study
  Country: US (occurrence: US)
  Receive Date: 20150717
  Receipt Date: 20180726
  Transmission Date: 20181010
  Serious: Yes (Other)
  Sender: FDA-Public Use
  Company Number: US-SA-2015SA049820

PATIENT
  Age: 48 Year
  Sex: Female

DRUGS (3)
  1. FENTANYL. [Concomitant]
     Active Substance: FENTANYL
     Dosage: UNK
  2. ALEMTUZUMAB [Suspect]
     Active Substance: ALEMTUZUMAB
     Dosage: 12 MG,QD
     Route: 041
     Dates: start: 20160404, end: 20160406
  3. ALEMTUZUMAB [Suspect]
     Active Substance: ALEMTUZUMAB
     Indication: MULTIPLE SCLEROSIS
     Dosage: 12 MG,QD
     Route: 041
     Dates: start: 20150330, end: 20150403

REACTIONS (38)
  - Scab [Recovered/Resolved]
  - Contusion [Recovered/Resolved]
  - Pain [Unknown]
  - Condition aggravated [Unknown]
  - Laboratory test abnormal [Unknown]
  - Musculoskeletal stiffness [Not Recovered/Not Resolved]
  - Sinus congestion [Unknown]
  - Ill-defined disorder [Unknown]
  - Confusional state [Not Recovered/Not Resolved]
  - Productive cough [Unknown]
  - Muscle spasms [Not Recovered/Not Resolved]
  - Infection [Unknown]
  - Arthritis [Not Recovered/Not Resolved]
  - Carpal tunnel syndrome [Unknown]
  - Hypoaesthesia [Unknown]
  - Pain in extremity [Not Recovered/Not Resolved]
  - JC virus infection [Unknown]
  - Toothache [Unknown]
  - General physical health deterioration [Recovering/Resolving]
  - Condition aggravated [Not Recovered/Not Resolved]
  - Hypersensitivity [Not Recovered/Not Resolved]
  - Sinusitis [Unknown]
  - Dizziness [Not Recovered/Not Resolved]
  - Fatigue [Unknown]
  - Cerebral disorder [Unknown]
  - Periodontal disease [Not Recovered/Not Resolved]
  - Fall [Unknown]
  - Emotional disorder [Recovering/Resolving]
  - Eye disorder [Not Recovered/Not Resolved]
  - Balance disorder [Not Recovered/Not Resolved]
  - Acrochordon [Not Recovered/Not Resolved]
  - Unevaluable event [Unknown]
  - Hemiparesis [Not Recovered/Not Resolved]
  - Ear pain [Unknown]
  - Asthenia [Not Recovered/Not Resolved]
  - Memory impairment [Not Recovered/Not Resolved]
  - Nodule [Not Recovered/Not Resolved]
  - Headache [Not Recovered/Not Resolved]

NARRATIVE: CASE EVENT DATE: 2015
